FAERS Safety Report 6925153-2 (Version None)
Quarter: 2010Q3

REPORT INFORMATION
  Report Type: 
  Country: None (occurrence: None)
  Receive Date: 20100816
  Receipt Date: 20100806
  Transmission Date: 20110219
  Serious: Yes (Death, Hospitalization, Other)
  Sender: FDA-Public Use
  Company Number: GB-ABBOTT-09P-167-0499303-00

PATIENT
  Sex: Female
  Weight: 35 kg

DRUGS (3)
  1. SEVOFLURANE [Suspect]
     Indication: PRODUCT USED FOR UNKNOWN INDICATION
     Dosage: INDUCTION, DURATION: 30-50 MINUTES
     Route: 055
  2. SEVOFLURANE [Suspect]
     Dosage: MAINTENANCE
     Route: 055
  3. ACETAMINOPHEN [Suspect]
     Indication: ARTHRALGIA
     Dosage: 20 DOSES OF 1 GRAM INSTEAD OF 525 MG
     Route: 042
     Dates: start: 20080618, end: 20080622

REACTIONS (4)
  - DRUG TOXICITY [None]
  - HEPATIC FAILURE [None]
  - LIVER FUNCTION TEST ABNORMAL [None]
  - OVERDOSE [None]
